FAERS Safety Report 25257362 (Version 1)
Quarter: 2025Q2

REPORT INFORMATION
  Report Type: Spontaneous
  Country: US (occurrence: US)
  Receive Date: 20250430
  Receipt Date: 20250430
  Transmission Date: 20250717
  Serious: No
  Sender: BRISTOL-MYERS SQUIBB COMPANY
  Company Number: US-BRISTOL-MYERS SQUIBB COMPANY-2025-063264

PATIENT
  Age: 79 Year
  Sex: Female

DRUGS (1)
  1. KRAZATI [Suspect]
     Active Substance: ADAGRASIB
     Indication: Product used for unknown indication
     Dosage: DOSE : TAKE 3 TABLETS TWICE DAILY;     FREQ : TWICE DAILY
     Route: 048

REACTIONS (2)
  - Product use issue [Unknown]
  - Treatment noncompliance [Unknown]
